FAERS Safety Report 8204337-X (Version None)
Quarter: 2012Q1

REPORT INFORMATION
  Report Type: 
  Country: None (occurrence: None)
  Receive Date: 20120313
  Receipt Date: 20120312
  Transmission Date: 20120608
  Serious: Yes (Other)
  Sender: FDA-Public Use
  Company Number: US-PFIZER INC-2012065229

PATIENT
  Sex: Female

DRUGS (5)
  1. CHANTIX [Suspect]
     Dosage: UNK
     Route: 048
  2. CHANTIX [Suspect]
     Indication: SMOKING CESSATION THERAPY
     Dosage: 0.5 MG, 1X/DAY
     Route: 048
  3. CHANTIX [Suspect]
     Dosage: 0.5 MG, 1X/DAY
     Route: 048
     Dates: start: 20120201, end: 20120201
  4. CHANTIX [Suspect]
     Dosage: 0.5MG IN HALF AND TOOK THE HALF
     Route: 048
     Dates: start: 20120201, end: 20120201
  5. CRESTOR [Concomitant]
     Indication: BLOOD CHOLESTEROL INCREASED
     Dosage: UNK

REACTIONS (4)
  - DRUG INTOLERANCE [None]
  - ABNORMAL DREAMS [None]
  - MOOD SWINGS [None]
  - AGITATION [None]
